FAERS Safety Report 6548415-X (Version None)
Quarter: 2010Q1

REPORT INFORMATION
  Report Type: 
  Country: None (occurrence: None)
  Receive Date: 20100124
  Receipt Date: 20090623
  Transmission Date: 20100710
  Serious: No
  Sender: FDA-Public Use
  Company Number: US-ALLERGAN-0908854US

PATIENT
  Sex: Female

DRUGS (12)
  1. RESTASIS [Suspect]
     Indication: DRY EYE
  2. ALLEGRA [Concomitant]
  3. SYNTHROID [Concomitant]
  4. COMBIGAN [Concomitant]
  5. LUMIGAN [Concomitant]
  6. METFORMIN [Concomitant]
  7. AMORAL [Concomitant]
  8. LISINOPRIL [Concomitant]
  9. METOPROLOL TARTRATE [Concomitant]
  10. ULTRAM [Concomitant]
  11. LIPITOR [Concomitant]
  12. NEXIUM [Concomitant]

REACTIONS (4)
  - DYSPNOEA [None]
  - ERUCTATION [None]
  - SENSORY DISTURBANCE [None]
  - SKIN BURNING SENSATION [None]
